FAERS Safety Report 8553240-4 (Version None)
Quarter: 2012Q3

REPORT INFORMATION
  Report Type: 
  Country: None (occurrence: None)
  Receive Date: 20120731
  Receipt Date: 20120725
  Transmission Date: 20120928
  Serious: No
  Sender: FDA-Public Use
  Company Number: US-BAYER-2012-075896

PATIENT
  Sex: Female

DRUGS (3)
  1. BEYAZ [Suspect]
     Indication: CONTRACEPTION
     Dosage: UNK
     Route: 048
  2. BEYAZ [Suspect]
     Indication: MIGRAINE
  3. YAZ [Suspect]
     Route: 048

REACTIONS (8)
  - ABDOMINAL PAIN [None]
  - MIGRAINE [None]
  - FLUID RETENTION [None]
  - METRORRHAGIA [None]
  - FOOD CRAVING [None]
  - ABDOMINAL DISTENSION [None]
  - WEIGHT INCREASED [None]
  - MOOD ALTERED [None]
